FAERS Safety Report 6700431-0 (Version None)
Quarter: 2010Q2

REPORT INFORMATION
  Report Type: 
  Country: None (occurrence: None)
  Receive Date: 20100428
  Receipt Date: 20100414
  Transmission Date: 20101027
  Serious: Yes (Hospitalization)
  Sender: FDA-Public Use
  Company Number: US-ROCHE-699269

PATIENT
  Age: 75 Year
  Sex: Female

DRUGS (2)
  1. BEVACIZUMAB [Suspect]
     Dosage: FREQUENCY:OVER 30-90 MINUTES ON DAY 1 AND 15.LAST DOSE OF  PRIOR TO SAE:15 MARCH 2010(CYCLE1, DAY15)
     Route: 065
     Dates: start: 20100301
  2. TEMSIROLIMUS [Suspect]
     Dosage: FREQUENCY:OVER 30 MINUTES ON DAY 1,8,15 AND22.LAST DOSE OF  PRIOR TO SAE:22 MARCH 2010(CYCLE1,DAY22)
     Route: 042
     Dates: start: 20100301

REACTIONS (3)
  - DEHYDRATION [None]
  - HYPOKALAEMIA [None]
  - HYPOPHOSPHATAEMIA [None]
